FAERS Safety Report 4303947-X (Version None)
Quarter: 2004Q1

REPORT INFORMATION
  Report Type: 
  Country: None (occurrence: None)
  Receive Date: 20040223
  Receipt Date: 20040123
  Transmission Date: 20041129
  Serious: No
  Sender: FDA-Public Use
  Company Number: PHEH2004US01159

PATIENT
  Age: 56 Year
  Sex: Female

DRUGS (3)
  1. ZELNORM [Suspect]
     Indication: IMPAIRED GASTRIC EMPTYING
     Dosage: BID, ORAL
     Route: 048
     Dates: start: 20031101, end: 20040121
  2. PREMARIN [Concomitant]
  3. SYNTHROID [Concomitant]

REACTIONS (2)
  - BACK PAIN [None]
  - PARAESTHESIA [None]
